FAERS Safety Report 8065313-3 (Version None)
Quarter: 2012Q1

REPORT INFORMATION
  Report Type: 
  Country: None (occurrence: None)
  Receive Date: 20120124
  Receipt Date: 20120119
  Transmission Date: 20120608
  Serious: Yes (Life-Threatening, Hospitalization)
  Sender: FDA-Public Use
  Company Number: US-BAYER-2011-002795

PATIENT
  Age: 44 Year
  Sex: Female
  Weight: 63 kg

DRUGS (3)
  1. IBUPROFEN [Concomitant]
  2. YAZ [Suspect]
     Indication: MENSTRUATION IRREGULAR
  3. VITAMIN TAB [Concomitant]

REACTIONS (6)
  - ANXIETY [None]
  - FATIGUE [None]
  - PULMONARY EMBOLISM [None]
  - PAIN [None]
  - TRAUMATIC LUNG INJURY [None]
  - EMOTIONAL DISTRESS [None]
